FAERS Safety Report 21720931 (Version 1)
Quarter: 2022Q4

REPORT INFORMATION
  Report Type: Report from Study
  Country: US (occurrence: US)
  Receive Date: 20221213
  Receipt Date: 20221213
  Transmission Date: 20230113
  Serious: Yes (Hospitalization)
  Sender: FDA-Public Use
  Company Number: US-BoehringerIngelheim-2022-BI-164197

PATIENT
  Age: 61 Year
  Sex: Male

DRUGS (1)
  1. OFEV [Suspect]
     Active Substance: NINTEDANIB
     Indication: Idiopathic pulmonary fibrosis
     Dosage: LOT NO: 103911
     Route: 048
     Dates: start: 20220330

REACTIONS (10)
  - Contusion [Unknown]
  - Road traffic accident [Unknown]
  - Injury [Unknown]
  - Nasal dryness [Unknown]
  - Epistaxis [Unknown]
  - COVID-19 [Unknown]
  - Nausea [Unknown]
  - Abdominal discomfort [Unknown]
  - Swelling [Unknown]
  - Diarrhoea [Unknown]

NARRATIVE: CASE EVENT DATE: 20220401
